FAERS Safety Report 5879855-X (Version None)
Quarter: 2008Q3

REPORT INFORMATION
  Report Type: 
  Country: None (occurrence: None)
  Receive Date: 20080912
  Receipt Date: 20080903
  Transmission Date: 20090109
  Serious: Yes (Other)
  Sender: FDA-Public Use
  Company Number: BR-ROCHE-584903

PATIENT
  Sex: Female
  Weight: 63 kg

DRUGS (1)
  1. ROACUTAN [Suspect]
     Indication: ACNE
     Route: 048
     Dates: start: 20080701

REACTIONS (5)
  - HYPERHIDROSIS [None]
  - ILL-DEFINED DISORDER [None]
  - LIP DRY [None]
  - WEIGHT DECREASED [None]
  - WOUND [None]
